FAERS Safety Report 5053325-3 (Version None)
Quarter: 2006Q3

REPORT INFORMATION
  Report Type: 
  Country: None (occurrence: None)
  Receive Date: 20060706
  Receipt Date: 20060623
  Transmission Date: 20061208
  Serious: Yes (Other)
  Sender: FDA-Public Use
  Company Number: 200410297BYL

PATIENT
  Age: 22 Month
  Sex: Male
  Weight: 11.4 kg

DRUGS (16)
  1. GAMIMUNE N 5% [Suspect]
     Indication: KAWASAKI'S DISEASE
     Dosage: SEE IMAGE
     Route: 041
     Dates: start: 20040210, end: 20040211
  2. GAMIMUNE N 5% [Suspect]
     Indication: KAWASAKI'S DISEASE
     Dosage: SEE IMAGE
     Route: 041
     Dates: start: 20040211, end: 20040212
  3. GAMIMUNE N 5% [Suspect]
     Indication: KAWASAKI'S DISEASE
     Dosage: SEE IMAGE
     Route: 041
     Dates: start: 20040213, end: 20040217
  4. GAMIMUNE N 5% [Suspect]
     Indication: KAWASAKI'S DISEASE
     Dosage: SEE IMAGE
     Route: 041
     Dates: start: 20040217, end: 20040221
  5. GAMIMUNE N 5% [Suspect]
     Indication: KAWASAKI'S DISEASE
     Dosage: SEE IMAGE
     Route: 041
     Dates: start: 20040211
  6. ASPIRIN [Concomitant]
  7. CARBENIN [Concomitant]
  8. HOKUNALIN [Concomitant]
  9. FLUMARIN [Concomitant]
  10. NEO-MINOPHAGEN [Concomitant]
  11. BROACT [Concomitant]
  12. MIRACLID [Concomitant]
  13. FOSMICIN S [Concomitant]
  14. PANVITAN [Concomitant]
  15. FROBEN [Concomitant]
  16. INCREMIN [Concomitant]

REACTIONS (5)
  - BRONCHITIS [None]
  - HAEMOLYTIC ANAEMIA [None]
  - HYPOVITAMINOSIS [None]
  - IRON DEFICIENCY ANAEMIA [None]
  - LIVER DISORDER [None]
